FAERS Safety Report 12443634 (Version 3)
Quarter: 2016Q3

REPORT INFORMATION
  Report Type: Spontaneous
  Country: CA (occurrence: CA)
  Receive Date: 20160607
  Receipt Date: 20160826
  Transmission Date: 20161109
  Serious: Yes (Hospitalization, Other)
  Sender: FDA-Public Use
  Company Number: CA-BAYER-2016-104932

PATIENT
  Age: 42 Year
  Sex: Male

DRUGS (17)
  1. CIPROFLOXACIN. [Suspect]
     Active Substance: CIPROFLOXACIN
     Indication: INFLUENZA LIKE ILLNESS
     Dosage: UNK
     Route: 048
  2. AZITHROMYCIN ANHYDROUS. [Concomitant]
     Active Substance: AZITHROMYCIN ANHYDROUS
     Indication: CYSTIC FIBROSIS
     Dosage: UNK
  3. BUDESONIDE W/FORMOTEROL FUMARATE [Concomitant]
     Active Substance: BUDESONIDE\FORMOTEROL FUMARATE
     Dosage: UNK
  4. MULTIVITAMIN [Concomitant]
     Active Substance: VITAMINS
  5. CICLESONIDE [Concomitant]
     Active Substance: CICLESONIDE
     Dosage: UNK
  6. MEROPENEM. [Suspect]
     Active Substance: MEROPENEM
     Indication: INFECTIVE PULMONARY EXACERBATION OF CYSTIC FIBROSIS
     Dosage: UNK
     Route: 042
  7. OMALIZUMAB [Concomitant]
     Active Substance: OMALIZUMAB
     Dosage: UNK
  8. VANCOMYCIN [Suspect]
     Active Substance: VANCOMYCIN
     Dosage: UNK
     Route: 042
  9. INSULINE NPH [Concomitant]
     Active Substance: INSULIN PORK\INSULIN PURIFIED PORK
     Dosage: UNK
  10. HYDROCORTISONE. [Concomitant]
     Active Substance: HYDROCORTISONE
     Dosage: UNK
  11. PANCREATIC ENZYMES [Concomitant]
     Active Substance: UNSPECIFIED INGREDIENT
  12. CIPROFLOXACIN. [Suspect]
     Active Substance: CIPROFLOXACIN
     Indication: INFECTIVE PULMONARY EXACERBATION OF CYSTIC FIBROSIS
     Dosage: REGULARLY FOR PULMONARY EXACERBATIONS
     Route: 048
  13. OSELTAMIVIR [Suspect]
     Active Substance: OSELTAMIVIR
     Indication: INFLUENZA LIKE ILLNESS
     Dosage: UNK
     Route: 042
  14. DORNASE ALFA [Concomitant]
     Active Substance: DORNASE ALFA
     Indication: INHALATION THERAPY
  15. TOBRAMYCIN. [Suspect]
     Active Substance: TOBRAMYCIN
     Indication: INFECTIVE PULMONARY EXACERBATION OF CYSTIC FIBROSIS
     Route: 042
  16. AZTREONAM. [Concomitant]
     Active Substance: AZTREONAM
     Indication: ANTIBIOTIC THERAPY
     Route: 055
  17. MONTELUKAST [Concomitant]
     Active Substance: MONTELUKAST SODIUM
     Dosage: UNK

REACTIONS (2)
  - Staphylococcal sepsis [Recovered/Resolved]
  - Toxic epidermal necrolysis [Recovered/Resolved]
